FAERS Safety Report 24538950 (Version 3)
Quarter: 2024Q4

REPORT INFORMATION
  Report Type: Spontaneous
  Country: PL (occurrence: PL)
  Receive Date: 20241023
  Receipt Date: 20241108
  Transmission Date: 20250114
  Serious: Yes (Hospitalization, Other)
  Sender: NOVARTIS
  Company Number: PL-002147023-NVSC2024PL203366

PATIENT
  Age: 69 Year
  Sex: Male

DRUGS (3)
  1. CYCLOSPORINE [Suspect]
     Active Substance: CYCLOSPORINE
     Indication: Product used for unknown indication
     Dosage: 4 MG, QD, (4MG/BODY WEIGHT/DAILY)
     Route: 065
     Dates: start: 2009
  2. METHOTREXATE [Suspect]
     Active Substance: METHOTREXATE
     Indication: Product used for unknown indication
     Dosage: UNK, QW (7,5-15MG/WEEK)
     Route: 048
     Dates: start: 2007, end: 2019
  3. ADALIMUMAB [Suspect]
     Active Substance: ADALIMUMAB
     Indication: Psoriasis
     Dosage: UNK
     Route: 065
     Dates: start: 20190810

REACTIONS (5)
  - Acute myocardial infarction [Unknown]
  - Angina pectoris [Unknown]
  - Micturition disorder [Unknown]
  - Skin lesion [Unknown]
  - Drug ineffective [Unknown]

NARRATIVE: CASE EVENT DATE: 20231201
